FAERS Safety Report 11998122 (Version 1)
Quarter: 2016Q1

REPORT INFORMATION
  Report Type: Report from Study
  Country: US (occurrence: US)
  Receive Date: 20160203
  Receipt Date: 20160203
  Transmission Date: 20160526
  Serious: No
  Sender: FDA-Public Use
  Company Number: US-ABBVIE-15K-163-1417481-00

PATIENT
  Age: 44 Year
  Sex: Female

DRUGS (1)
  1. HUMIRA [Suspect]
     Active Substance: ADALIMUMAB
     Indication: PRODUCT USED FOR UNKNOWN INDICATION
     Route: 058

REACTIONS (11)
  - Throat irritation [Unknown]
  - Nasal pruritus [Unknown]
  - Ear discomfort [Unknown]
  - Eye pruritus [Unknown]
  - Ear infection [Unknown]
  - Tympanic membrane disorder [Unknown]
  - Allergy to plants [Unknown]
  - Pruritus [Unknown]
  - Mycotic allergy [Unknown]
  - Hypoacusis [Unknown]
  - Seasonal allergy [Unknown]
